FAERS Safety Report 26059409 (Version 1)
Quarter: 2025Q4

REPORT INFORMATION
  Report Type: Spontaneous
  Country: US (occurrence: None)
  Receive Date: 20251117
  Receipt Date: 20251117
  Transmission Date: 20260118
  Serious: Yes (Hospitalization)
  Sender: FDA-CTU
  Company Number: None

PATIENT
  Sex: Male

DRUGS (3)
  1. TACROLIMUS [Suspect]
     Active Substance: TACROLIMUS
     Indication: Liver transplant
     Dosage: TAKE 1 CAPSULE BY MOUTH 2 TIMES DAILY.
     Route: 048
     Dates: start: 20250612
  2. TACROLIMUS [Concomitant]
     Active Substance: TACROLIMUS
  3. TACROMILMUS  A [Concomitant]

REACTIONS (1)
  - Dyspnoea [None]
